FAERS Safety Report 14299885 (Version 1)
Quarter: 2017Q4

REPORT INFORMATION
  Report Type: Spontaneous
  Country: GB (occurrence: GB)
  Receive Date: 20171219
  Receipt Date: 20171219
  Transmission Date: 20180321
  Serious: Yes (Life-Threatening, Hospitalization, Disabling, Congenital Anomaly, Other)
  Sender: FDA-Public Use
  Company Number: GB-SUN PHARMACEUTICAL INDUSTRIES LTD-2017RR-157373

PATIENT
  Age: 70 Year
  Sex: Female

DRUGS (6)
  1. TRAMADOL. [Suspect]
     Active Substance: TRAMADOL
     Indication: PRODUCT USED FOR UNKNOWN INDICATION
     Dosage: DOSAGE FORM: UNSPECIFIED
     Route: 065
  2. FENTANYL. [Suspect]
     Active Substance: FENTANYL
     Dosage: 14100 UG, UNK
     Route: 065
  3. MIRTAZAPINE. [Suspect]
     Active Substance: MIRTAZAPINE
     Dosage: 15 MG, QD, DOSAGE FORM: UNSPECIFIED
     Route: 065
     Dates: start: 201405
  4. FENTANYL. [Suspect]
     Active Substance: FENTANYL
     Indication: PRODUCT USED FOR UNKNOWN INDICATION
     Dosage: 20 100 UG, FENTANYL PATCHES EVERY 2 MONTHS, OVERDOSE
     Route: 065
  5. FENTANYL. [Suspect]
     Active Substance: FENTANYL
     Dosage: 150 UG, UNK
     Route: 065
  6. MIRTAZAPINE. [Suspect]
     Active Substance: MIRTAZAPINE
     Indication: PRODUCT USED FOR UNKNOWN INDICATION
     Dosage: 90 MG, QD, DOSAGE FORM: UNSPECIFIED
     Route: 065
     Dates: start: 201407

REACTIONS (3)
  - Intentional overdose [Unknown]
  - Drug ineffective [Unknown]
  - Suicide attempt [Unknown]
